FAERS Safety Report 14604055 (Version 1)
Quarter: 2018Q1

REPORT INFORMATION
  Report Type: Report from Study
  Country: BR (occurrence: BR)
  Receive Date: 20180306
  Receipt Date: 20180306
  Transmission Date: 20180509
  Serious: Yes (Hospitalization, Other)
  Sender: FDA-Public Use
  Company Number: PHHY2017BR134408

PATIENT
  Age: 85 Year
  Sex: Male

DRUGS (5)
  1. EXELON PATCH [Suspect]
     Active Substance: RIVASTIGMINE
     Indication: DEMENTIA ALZHEIMER^S TYPE
     Dosage: 13.3 MG, QD, PATCH 15 (CM2)
     Route: 062
     Dates: start: 2017, end: 201801
  2. DONAREN [Concomitant]
     Active Substance: TRAZODONE HYDROCHLORIDE
     Indication: PRODUCT USED FOR UNKNOWN INDICATION
     Dosage: 1 DF, QD STARTED 1 MONTH AGO
     Route: 048
  3. EXELON PATCH [Suspect]
     Active Substance: RIVASTIGMINE
     Indication: DEMENTIA
     Dosage: 9.5 MG (PATCH 10 CM2), QD
     Route: 062
  4. DESVENLAFAXINE. [Concomitant]
     Active Substance: DESVENLAFAXINE
     Indication: PRODUCT USED FOR UNKNOWN INDICATION
     Dosage: 1 DF, QD STARTED 1 MONTH AGO
     Route: 048
  5. PURAN [Concomitant]
     Active Substance: LEVOTHYROXINE SODIUM
     Indication: HYPOTHYROIDISM
     Dosage: 1 DF, QD STARTED 2 YEARS AGO
     Route: 048

REACTIONS (12)
  - Scar [Unknown]
  - Seizure [Recovering/Resolving]
  - Agitation [Not Recovered/Not Resolved]
  - Memory impairment [Recovering/Resolving]
  - Application site erythema [Not Recovered/Not Resolved]
  - Urinary tract infection [Recovering/Resolving]
  - Fall [Recovering/Resolving]
  - Application site vesicles [Recovered/Resolved]
  - Eating disorder [Recovering/Resolving]
  - Speech disorder [Recovering/Resolving]
  - Gait disturbance [Recovering/Resolving]
  - Pain in extremity [Recovering/Resolving]

NARRATIVE: CASE EVENT DATE: 201711
